FAERS Safety Report 17560050 (Version 1)
Quarter: 2020Q1

REPORT INFORMATION
  Report Type: Spontaneous
  Country: US (occurrence: US)
  Receive Date: 20200319
  Receipt Date: 20200319
  Transmission Date: 20200409
  Serious: Yes (Hospitalization)
  Sender: FDA-Public Use
  Company Number: US-GLOBAL BLOOD THERAPEUTICS INC-US-GBT-20-00299

PATIENT
  Sex: Male

DRUGS (2)
  1. CRIZANLIZUMAB [Concomitant]
     Active Substance: CRIZANLIZUMAB
     Indication: PRODUCT USED FOR UNKNOWN INDICATION
  2. OXBRYTA [Suspect]
     Active Substance: VOXELOTOR
     Indication: SICKLE CELL DISEASE
     Route: 048

REACTIONS (2)
  - Sickle cell anaemia with crisis [Recovered/Resolved]
  - Product dose omission [Recovered/Resolved]

NARRATIVE: CASE EVENT DATE: 2020
